FAERS Safety Report 25130672 (Version 1)
Quarter: 2025Q1

REPORT INFORMATION
  Report Type: Spontaneous
  Country: US (occurrence: US)
  Receive Date: 20250327
  Receipt Date: 20250327
  Transmission Date: 20250408
  Serious: No
  Sender: RECORDATI
  Company Number: US-RECORDATI RARE DISEASE INC.-2024007780

PATIENT

DRUGS (1)
  1. CARBAGLU [Suspect]
     Active Substance: CARGLUMIC ACID
     Indication: Product used for unknown indication
     Dosage: UNK, BID (DISSOLVE 11 TABLETS BY MOUTH IN 2.5 ML OF WATER PER TABLET AND TAKE TWICE DAILY OR AS DIRE
     Route: 048

REACTIONS (1)
  - Staphylococcal infection [Unknown]
